FAERS Safety Report 8957496 (Version 2)
Quarter: 2012Q4

REPORT INFORMATION
  Report Type: 
  Country: JP (occurrence: JP)
  Receive Date: 20121211
  Receipt Date: 20121221
  Transmission Date: 20130627
  Serious: Yes (Hospitalization, Other)
  Sender: FDA-Public Use
  Company Number: JP-AMGEN-JPNSP2012078932

PATIENT
  Age: 60 Year
  Sex: Male

DRUGS (1)
  1. GRAN [Suspect]
     Indication: AUTOIMMUNE NEUTROPENIA
     Dosage: UNK
     Route: 065

REACTIONS (1)
  - Ileal ulcer [Recovered/Resolved]
